FAERS Safety Report 7592057-4 (Version None)
Quarter: 2011Q3

REPORT INFORMATION
  Report Type: 
  Country: None (occurrence: None)
  Receive Date: 20110705
  Receipt Date: 20110705
  Transmission Date: 20111222
  Serious: Yes (Hospitalization)
  Sender: FDA-Public Use
  Company Number: None

PATIENT
  Age: 73 Year
  Sex: Female
  Weight: 58.4 kg

DRUGS (6)
  1. FRAGMIN [Concomitant]
  2. TRIAMCINOLONE [Concomitant]
  3. VICODIN [Concomitant]
  4. ERLOTINIB HYDROCHLORIDE [Suspect]
     Indication: NON-SMALL CELL LUNG CANCER
     Dosage: 100MG ORAL DAILY
     Route: 048
     Dates: start: 20090112
  5. ZOMETA [Concomitant]
  6. LIDODERM [Concomitant]

REACTIONS (2)
  - FALL [None]
  - FEMUR FRACTURE [None]
